FAERS Safety Report 10943810 (Version 1)
Quarter: 2015Q1

REPORT INFORMATION
  Report Type: Spontaneous
  Country: US (occurrence: None)
  Receive Date: 20150212
  Receipt Date: 20150212
  Transmission Date: 20150721
  Serious: No
  Sender: FDA-Public Use
  Company Number: TPA2011A05028

PATIENT
  Age: 68 Year
  Sex: Female
  Weight: 72.58 kg

DRUGS (3)
  1. PREDNISONE (PREDNISONE) [Concomitant]
     Active Substance: PREDNISONE
  2. ULORIC [Suspect]
     Active Substance: FEBUXOSTAT
     Indication: BLOOD URIC ACID INCREASED
     Dosage: 1 IN 1 DAY
     Route: 048
     Dates: start: 20110517, end: 2011
  3. ATENOLOL (ATENOLOL) [Concomitant]
     Active Substance: ATENOLOL

REACTIONS (2)
  - Gout [None]
  - Oedema peripheral [None]

NARRATIVE: CASE EVENT DATE: 201105
